FAERS Safety Report 20892801 (Version 1)
Quarter: 2022Q2

REPORT INFORMATION
  Report Type: Report from Study
  Country: US (occurrence: US)
  Receive Date: 20220531
  Receipt Date: 20220531
  Transmission Date: 20220721
  Serious: Yes (Hospitalization)
  Sender: FDA-Public Use
  Company Number: US-GILEAD-2022-0578075

PATIENT
  Sex: Female

DRUGS (18)
  1. AZTREONAM LYSINE [Suspect]
     Active Substance: AZTREONAM LYSINE
     Indication: Cystic fibrosis
     Dosage: 75 MG, TID,  CYCLE 28 DAYS ON, 28 DAYS OFF
     Route: 055
  2. AZTREONAM LYSINE [Suspect]
     Active Substance: AZTREONAM LYSINE
     Indication: Cystic fibrosis lung
  3. PULMOZYME [Concomitant]
     Active Substance: DORNASE ALFA
  4. ALBUTEROL SULFATE [Concomitant]
     Active Substance: ALBUTEROL SULFATE
  5. OMEPRAZOLE [Concomitant]
     Active Substance: OMEPRAZOLE
  6. FISH OIL [Concomitant]
     Active Substance: FISH OIL
  7. FLAXSEED [Concomitant]
     Active Substance: FLAX SEED
  8. ZENPEP [Concomitant]
     Active Substance: PANCRELIPASE AMYLASE\PANCRELIPASE LIPASE\PANCRELIPASE PROTEASE
  9. VITAMIN D NOS [Concomitant]
     Active Substance: VITAMIN D NOS
  10. SELENIUM [Concomitant]
     Active Substance: SELENIUM
  11. COLISTIN SULFATE [Concomitant]
     Active Substance: COLISTIN SULFATE
  12. COPPER [Concomitant]
     Active Substance: COPPER
  13. AZITHROMYCIN [Concomitant]
     Active Substance: AZITHROMYCIN
  14. SINGULAIR [Concomitant]
     Active Substance: MONTELUKAST SODIUM
  15. IRON [Concomitant]
     Active Substance: IRON
  16. ALBUTEROL [Concomitant]
     Active Substance: ALBUTEROL
  17. FLAXSEED [Concomitant]
     Active Substance: FLAX SEED
  18. SODIUM CHLORIDE [Concomitant]
     Active Substance: SODIUM CHLORIDE

REACTIONS (1)
  - Haemoptysis [Unknown]
